FAERS Safety Report 19930289 (Version 1)
Quarter: 2021Q4

REPORT INFORMATION
  Report Type: Spontaneous
  Country: US (occurrence: US)
  Receive Date: 20211008
  Receipt Date: 20211008
  Transmission Date: 20220303
  Serious: No
  Sender: FDA-Public Use
  Company Number: US-BAUSCH-BL-2021-033325

PATIENT
  Sex: Female

DRUGS (1)
  1. OPCON-A [Suspect]
     Active Substance: NAPHAZOLINE HYDROCHLORIDE\PHENIRAMINE MALEATE
     Indication: Eye allergy
     Dosage: ONE DROP IN EACH EYE
     Route: 047
     Dates: start: 20210926, end: 20210926

REACTIONS (1)
  - Instillation site erythema [Recovered/Resolved]

NARRATIVE: CASE EVENT DATE: 20210926
